FAERS Safety Report 4540999-6 (Version None)
Quarter: 2004Q4

REPORT INFORMATION
  Report Type: 
  Country: None (occurrence: None)
  Receive Date: 20041228
  Receipt Date: 20041224
  Transmission Date: 20050328
  Serious: Yes (Disabling)
  Sender: FDA-Public Use
  Company Number: 200410721BNE

PATIENT
  Age: 70 Year
  Sex: Male
  Weight: 57 kg

DRUGS (8)
  1. NIFEDIPINE [Suspect]
     Dosage: 30 MG, TOTAL DAILY
     Dates: start: 20041020, end: 20041023
  2. LISINOPRIL [Concomitant]
  3. NICORANDIL [Concomitant]
  4. SIMVASTATIN [Concomitant]
  5. CLOPIDOGREL [Concomitant]
  6. AMITRIPTYLINE [Concomitant]
  7. ISMN [Concomitant]
  8. LANSOPRAZOLE [Concomitant]

REACTIONS (5)
  - ASTHENIA [None]
  - DYSTONIA [None]
  - IMMOBILE [None]
  - MINERAL DEFICIENCY [None]
  - TREMOR [None]
